FAERS Safety Report 6716934-9 (Version None)
Quarter: 2010Q2

REPORT INFORMATION
  Report Type: 
  Country: None (occurrence: None)
  Receive Date: 20100508
  Receipt Date: 20100508
  Transmission Date: 20101027
  Serious: No
  Sender: FDA-Public Use
  Company Number: None

PATIENT
  Sex: Male

DRUGS (1)
  1. RESTASIS [Suspect]

REACTIONS (3)
  - EYE INJURY [None]
  - PRODUCT DROPPER ISSUE [None]
  - SCAR [None]
